FAERS Safety Report 12946240 (Version 1)
Quarter: 2016Q4

REPORT INFORMATION
  Report Type: Spontaneous
  Country: US (occurrence: US)
  Receive Date: 20161116
  Receipt Date: 20161116
  Transmission Date: 20170207
  Serious: No
  Sender: FDA-Public Use
  Company Number: US-TEVA-710085USA

PATIENT
  Sex: Female
  Weight: 103.06 kg

DRUGS (1)
  1. CELECOXIB. [Suspect]
     Active Substance: CELECOXIB

REACTIONS (2)
  - Product substitution issue [Unknown]
  - Drug effect incomplete [Unknown]
